FAERS Safety Report 5160608-5 (Version None)
Quarter: 2006Q4

REPORT INFORMATION
  Report Type: 
  Country: None (occurrence: None)
  Receive Date: 20061121
  Receipt Date: 20061108
  Transmission Date: 20070319
  Serious: Yes (Other)
  Sender: FDA-Public Use
  Company Number: 2006106187

PATIENT
  Age: 85 Year
  Sex: Female
  Weight: 72.5755 kg

DRUGS (9)
  1. LYRICA [Suspect]
     Indication: POST HERPETIC NEURALGIA
     Dosage: 75 MG (75 MG, 1 IN 1 D)
     Dates: start: 20060101, end: 20060825
  2. SYNTHROID [Concomitant]
  3. TRENTAL ^AVENTINS PHARMA^ (PENTOXIFYLLINE) [Concomitant]
  4. NORVASC [Concomitant]
  5. ELAVIL [Concomitant]
  6. TRICOR [Concomitant]
  7. CYANOCOBALAMIN [Concomitant]
  8. COZAAR [Concomitant]
  9. IBUPROFEN [Concomitant]

REACTIONS (10)
  - DISORIENTATION [None]
  - DIZZINESS [None]
  - DRUG EFFECT DECREASED [None]
  - FALL [None]
  - MUSCLE STRAIN [None]
  - NERVE COMPRESSION [None]
  - PHARMACEUTICAL PRODUCT COMPLAINT [None]
  - SCRATCH [None]
  - SOMNOLENCE [None]
  - VISION BLURRED [None]
